FAERS Safety Report 14938825 (Version 1)
Quarter: 2018Q2

REPORT INFORMATION
  Report Type: Report from Study
  Country: EG (occurrence: EG)
  Receive Date: 20180525
  Receipt Date: 20180525
  Transmission Date: 20180711
  Serious: Yes (Other)
  Sender: FDA-Public Use
  Company Number: EG-SA-2018SA130194

PATIENT
  Age: 17 Year
  Sex: Female
  Weight: 50 kg

DRUGS (5)
  1. INSULIN GLARGINE [Suspect]
     Active Substance: INSULIN GLARGINE
     Dosage: 30 IU,QD
     Route: 058
  2. INSULIN GLARGINE [Suspect]
     Active Substance: INSULIN GLARGINE
     Indication: TYPE 1 DIABETES MELLITUS
     Dosage: 10 IU,QD
     Route: 058
     Dates: start: 20170202
  3. INSULIN GLARGINE [Suspect]
     Active Substance: INSULIN GLARGINE
     Dosage: 35 UNK
  4. INSUMAN RAPID [Suspect]
     Active Substance: INSULIN HUMAN
     Indication: TYPE 1 DIABETES MELLITUS
     Dosage: 24 IU, QD
     Route: 058
     Dates: start: 20180320
  5. INSUMAN RAPID [Suspect]
     Active Substance: INSULIN HUMAN
     Dosage: 18 IU, TID
     Route: 058

REACTIONS (7)
  - Hyperglycaemia [Not Recovered/Not Resolved]
  - Subcutaneous abscess [None]
  - Vaginal abscess [Recovering/Resolving]
  - Abscess [Recovering/Resolving]
  - Hyperglycaemia [Not Recovered/Not Resolved]
  - Coma [Recovered/Resolved]
  - White blood cells urine [Recovering/Resolving]

NARRATIVE: CASE EVENT DATE: 201803
